FAERS Safety Report 6278753-X (Version None)
Quarter: 2009Q3

REPORT INFORMATION
  Report Type: 
  Country: None (occurrence: None)
  Receive Date: 20090721
  Receipt Date: 20090714
  Transmission Date: 20100115
  Serious: Yes (Hospitalization)
  Sender: FDA-Public Use
  Company Number: 2009SP001817

PATIENT
  Age: 69 Year
  Sex: Female
  Weight: 64 kg

DRUGS (12)
  1. XOPENEX [Suspect]
     Indication: ASTHMA
     Dosage: 90 UG;TID;INHALATION, QID, INHALATION
     Route: 055
     Dates: start: 20070101, end: 20090401
  2. XOPENEX [Suspect]
     Indication: ASTHMA
     Dosage: 90 UG;TID;INHALATION, QID, INHALATION
     Route: 055
     Dates: start: 20090401
  3. ASPIRIN [Suspect]
     Dates: start: 20010101, end: 20080901
  4. FLUTICASONE [Concomitant]
  5. CLARITIN [Concomitant]
  6. FLOVENT [Concomitant]
  7. METFORMIN [Concomitant]
  8. GLIMEPIRIDE [Concomitant]
  9. CARTIA XT [Concomitant]
  10. AVAPRO [Concomitant]
  11. VITAMINS [Concomitant]
  12. IRON [Concomitant]

REACTIONS (2)
  - DRUG EFFECT DECREASED [None]
  - GASTRIC HAEMORRHAGE [None]
